FAERS Safety Report 16483809 (Version 1)
Quarter: 2019Q2

REPORT INFORMATION
  Report Type: Spontaneous
  Country: US (occurrence: US)
  Receive Date: 20190516
  Receipt Date: 20190516
  Transmission Date: 20190711
  Serious: No
  Sender: FDA-Public Use
  Company Number: None

PATIENT
  Age: 89 Year
  Sex: Male
  Weight: 32.21 kg

DRUGS (4)
  1. FORTEO [Suspect]
     Active Substance: TERIPARATIDE
     Indication: OSTEOARTHRITIS
     Dosage: OTHER STRENGTH 600 MCG/2.4 ML PEN INJ
     Route: 058
     Dates: start: 201708
  2. FORTEO [Suspect]
     Active Substance: TERIPARATIDE
     Indication: SCIATICA
     Dosage: OTHER STRENGTH 600 MCG/2.4 ML PEN INJ
     Route: 058
     Dates: start: 201708
  3. FORTEO [Suspect]
     Active Substance: TERIPARATIDE
     Indication: BACK PAIN
     Dosage: OTHER STRENGTH 600 MCG/2.4 ML PEN INJ
     Route: 058
     Dates: start: 201708
  4. FORTEO [Suspect]
     Active Substance: TERIPARATIDE
     Indication: OSTEOPOROSIS
     Dosage: OTHER STRENGTH 600 MCG/2.4 ML PEN INJ
     Route: 058
     Dates: start: 201708

REACTIONS (1)
  - Hospitalisation [None]
